FAERS Safety Report 5106281-3 (Version None)
Quarter: 2006Q3

REPORT INFORMATION
  Report Type: 
  Country: None (occurrence: None)
  Receive Date: 20060918
  Receipt Date: 20060905
  Transmission Date: 20061208
  Serious: Yes (Death)
  Sender: FDA-Public Use
  Company Number: US-JNJFOC-20060901946

PATIENT
  Age: 81 Year
  Sex: Female

DRUGS (6)
  1. ACETAMINOPHEN [Suspect]
     Route: 048
  2. ACETAMINOPHEN [Suspect]
     Indication: SUICIDE ATTEMPT
     Route: 048
  3. ELAVIL [Suspect]
     Indication: SUICIDE ATTEMPT
     Route: 048
  4. BENZODIAZEPINE [Suspect]
     Indication: SUICIDE ATTEMPT
     Route: 048
  5. VICODIN [Suspect]
     Indication: SUICIDE ATTEMPT
     Route: 048
  6. ALCOHOL [Suspect]
     Indication: SUICIDE ATTEMPT
     Route: 048

REACTIONS (7)
  - ALCOHOL USE [None]
  - COMPLETED SUICIDE [None]
  - HYPERKALAEMIA [None]
  - HYPOKALAEMIA [None]
  - HYPOTENSION [None]
  - MENTAL STATUS CHANGES [None]
  - MULTIPLE DRUG OVERDOSE INTENTIONAL [None]
